FAERS Safety Report 9048986 (Version 1)
Quarter: 2013Q1

REPORT INFORMATION
  Report Type: Spontaneous
  Country: US (occurrence: US)
  Receive Date: 20130204
  Receipt Date: 20130204
  Transmission Date: 20140127
  Serious: Yes (Life-Threatening, Hospitalization)
  Sender: FDA-Public Use
  Company Number: US-BAYER-2013-003648

PATIENT
  Age: 50 Year
  Sex: Male
  Weight: 97.51 kg

DRUGS (2)
  1. ALEVE CAPLET/TABLET,MIDOL EXTENDED RELIEF CAPLET [Suspect]
     Dosage: 2 DF, BID
     Dates: start: 200307, end: 200307
  2. BLOOD PRESSURE MEDICATION (NOS) [Concomitant]
     Dosage: 2 DF, BID
     Dates: start: 200307, end: 200307

REACTIONS (2)
  - Cerebrovascular accident [None]
  - Overdose [None]
